FAERS Safety Report 16740640 (Version 1)
Quarter: 2019Q3

REPORT INFORMATION
  Report Type: Spontaneous
  Country: US (occurrence: US)
  Receive Date: 20190824
  Receipt Date: 20190824
  Transmission Date: 20191005
  Serious: Yes (Life-Threatening, Hospitalization, Disabling)
  Sender: FDA-Public Use
  Company Number: None

PATIENT
  Age: 63 Year
  Sex: Female
  Weight: 101.25 kg

DRUGS (3)
  1. ANASTRAZOLE [Concomitant]
     Active Substance: ANASTROZOLE
  2. MULTI VITAMIN [Concomitant]
     Active Substance: VITAMINS
  3. SOMADERM HGH HOMEOPATHIC GEL [Suspect]
     Active Substance: HOMEOPATHICS
     Indication: HORMONE THERAPY

REACTIONS (5)
  - Product formulation issue [None]
  - Oestrogen receptor positive breast cancer [None]
  - Breast mass [None]
  - Blood growth hormone increased [None]
  - Invasive ductal breast carcinoma [None]

NARRATIVE: CASE EVENT DATE: 20181128
